FAERS Safety Report 19222369 (Version 2)
Quarter: 2021Q4

REPORT INFORMATION
  Report Type: Spontaneous
  Country: GB (occurrence: GB)
  Receive Date: 20210506
  Receipt Date: 20211118
  Transmission Date: 20220303
  Serious: Yes (Other)
  Sender: FDA-Public Use
  Company Number: None

PATIENT
  Age: 35 Year
  Sex: Female

DRUGS (3)
  1. MONTELUKAST SODIUM [Suspect]
     Active Substance: MONTELUKAST SODIUM
     Indication: Ill-defined disorder
     Dosage: 10 MILLIGRAM (MG) PER DAY (QD)
     Route: 048
     Dates: start: 20160115, end: 20160122
  2. MONTELUKAST SODIUM [Suspect]
     Active Substance: MONTELUKAST SODIUM
     Dosage: 10 MILLIGRAM, QD
     Route: 048
     Dates: start: 20180207, end: 20180209
  3. PULMICORT TURBUHALER [Concomitant]
     Active Substance: BUDESONIDE
     Indication: Ill-defined disorder
     Dosage: UNK

REACTIONS (3)
  - Anxiety [Recovered/Resolved with Sequelae]
  - Adverse drug reaction [Recovered/Resolved with Sequelae]
  - Nightmare [Unknown]

NARRATIVE: CASE EVENT DATE: 20180207
